FAERS Safety Report 8314968-4 (Version None)
Quarter: 2012Q2

REPORT INFORMATION
  Report Type: 
  Country: None (occurrence: None)
  Receive Date: 20120426
  Receipt Date: 20120413
  Transmission Date: 20120825
  Serious: Yes (Other)
  Sender: FDA-Public Use
  Company Number: JP-MERCK-1204USA02899

PATIENT
  Age: 67 Year
  Sex: Male

DRUGS (2)
  1. JANUVIA [Suspect]
     Route: 048
  2. AMARYL [Suspect]
     Route: 048

REACTIONS (3)
  - RENAL FUNCTION TEST ABNORMAL [None]
  - HYPOGLYCAEMIA [None]
  - CARDIAC FAILURE [None]
